FAERS Safety Report 9747642 (Version 1)
Quarter: 2013Q4

REPORT INFORMATION
  Report Type: Spontaneous
  Country: US (occurrence: None)
  Receive Date: 20131211
  Receipt Date: 20131211
  Transmission Date: 20140711
  Serious: Yes (Disabling)
  Sender: FDA-Public Use
  Company Number: None

PATIENT
  Age: 37 Year
  Sex: Female
  Weight: 58.97 kg

DRUGS (3)
  1. AZITHROMYCIN [Suspect]
     Indication: EAR INFECTION
     Dosage: 5 PILLS 1X DAY ORALLY BY MOUTH
     Route: 048
     Dates: start: 20130329, end: 20130402
  2. COMPAZINE [Concomitant]
  3. IMODIUM [Concomitant]

REACTIONS (1)
  - Clostridium difficile infection [None]
